FAERS Safety Report 7246968-X (Version None)
Quarter: 2011Q1

REPORT INFORMATION
  Report Type: 
  Country: None (occurrence: None)
  Receive Date: 20110127
  Receipt Date: 20110118
  Transmission Date: 20110831
  Serious: Yes (Hospitalization)
  Sender: FDA-Public Use
  Company Number: US-AMGEN-USASP2010013392

PATIENT
  Age: 4 Day
  Sex: Male
  Weight: 3.678 kg

DRUGS (5)
  1. METHYLDOPA [Concomitant]
     Route: 064
  2. PRENATAL VITAMINS                  /01549301/ [Concomitant]
  3. ENBREL [Suspect]
     Dosage: 25 MG, 2 TIMES/WK
     Route: 063
     Dates: start: 20030101
  4. ENBREL [Suspect]
     Dosage: 25 MG, 2 TIMES/WK
     Route: 064
     Dates: start: 20030101
  5. INFANT FORMULAS [Concomitant]

REACTIONS (5)
  - DEHYDRATION [None]
  - JAUNDICE [None]
  - URINARY TRACT INFECTION [None]
  - WEIGHT DECREASE NEONATAL [None]
  - BACTERAEMIA [None]
